FAERS Safety Report 21508749 (Version 1)
Quarter: 2022Q4

REPORT INFORMATION
  Report Type: Spontaneous
  Country: IT (occurrence: IT)
  Receive Date: 20221026
  Receipt Date: 20221026
  Transmission Date: 20230112
  Serious: Yes (Death, Other)
  Sender: FDA-Public Use
  Company Number: IT-JNJFOC-20221033737

PATIENT

DRUGS (1)
  1. IMBRUVICA [Suspect]
     Active Substance: IBRUTINIB
     Indication: Product used for unknown indication
     Route: 048

REACTIONS (7)
  - Cardiac disorder [Fatal]
  - Atrial fibrillation [Unknown]
  - Arrhythmia [Unknown]
  - Atrial flutter [Unknown]
  - Cardiac failure [Unknown]
  - Sudden death [Fatal]
  - Ventricular tachyarrhythmia [Unknown]
